FAERS Safety Report 7605279-0 (Version None)
Quarter: 2011Q3

REPORT INFORMATION
  Report Type: 
  Country: None (occurrence: None)
  Receive Date: 20110705
  Receipt Date: 20110620
  Transmission Date: 20111222
  Serious: Yes (Hospitalization)
  Sender: FDA-Public Use
  Company Number: 2011P1005988

PATIENT
  Age: 8 Year
  Sex: Male
  Weight: 37.4 kg

DRUGS (2)
  1. AMMONUL [Suspect]
     Indication: HYPERAMMONAEMIA
     Dosage: 70 ML;X1;IV
     Route: 042
     Dates: start: 20110331, end: 20110331
  2. ARGININE NFUSION [Concomitant]

REACTIONS (14)
  - HYPERSENSITIVITY [None]
  - HEART RATE INCREASED [None]
  - BRAIN OEDEMA [None]
  - METABOLIC ACIDOSIS [None]
  - BLOOD PRESSURE INCREASED [None]
  - RASH [None]
  - ACIDOSIS HYPERCHLORAEMIC [None]
  - VOMITING [None]
  - NEUROTOXICITY [None]
  - TREMOR [None]
  - NERVOUS SYSTEM DISORDER [None]
  - DEPRESSED LEVEL OF CONSCIOUSNESS [None]
  - NAUSEA [None]
  - HYPERNATRAEMIA [None]
